FAERS Safety Report 9260986 (Version 1)
Quarter: 2013Q2

REPORT INFORMATION
  Report Type: Spontaneous
  Country: DE (occurrence: DE)
  Receive Date: 20130429
  Receipt Date: 20130429
  Transmission Date: 20140414
  Serious: Yes (Death, Hospitalization)
  Sender: FDA-Public Use
  Company Number: DE-TEVA-300452GER

PATIENT
  Age: 82 Year
  Sex: Male
  Weight: 90 kg

DRUGS (1)
  1. METFORMIN [Suspect]
     Indication: TYPE 2 DIABETES MELLITUS
     Route: 048

REACTIONS (4)
  - Death [Fatal]
  - Renal failure acute [Fatal]
  - Lactic acidosis [Fatal]
  - Dehydration [Fatal]
